FAERS Safety Report 5769925-9 (Version None)
Quarter: 2008Q2

REPORT INFORMATION
  Report Type: 
  Country: None (occurrence: None)
  Receive Date: 20080613
  Receipt Date: 20080506
  Transmission Date: 20081010
  Serious: Yes (Hospitalization, Other)
  Sender: FDA-Public Use
  Company Number: US-ABBOTT-08P-163-0447264-00

PATIENT
  Sex: Female
  Weight: 70.37 kg

DRUGS (14)
  1. HUMIRA [Suspect]
     Indication: RHEUMATOID ARTHRITIS
     Route: 058
     Dates: start: 20050101, end: 20071101
  2. ATORVASTATIN CALCIUM [Concomitant]
     Indication: CARDIAC DISORDER
     Route: 048
     Dates: start: 20070701
  3. CLOPIDOGREL [Concomitant]
     Indication: CARDIAC DISORDER
     Route: 048
     Dates: start: 20070701
  4. LISINOPRIL [Concomitant]
     Indication: BLOOD PRESSURE
     Route: 048
     Dates: start: 20070701
  5. METROPOROL [Concomitant]
     Indication: CARDIAC DISORDER
     Route: 048
     Dates: start: 20070701
  6. ASPIRIN [Concomitant]
     Indication: CARDIAC DISORDER
     Route: 048
     Dates: start: 20070701
  7. LEVOTHYROXINE SODIUM [Concomitant]
     Indication: HYPERTHYROIDISM
  8. METOPROLOL [Concomitant]
     Indication: DRUG USE FOR UNKNOWN INDICATION
  9. METHOTREXATE [Concomitant]
     Indication: RHEUMATOID ARTHRITIS
     Dosage: 3 TABLETS WEEKLY
     Route: 048
  10. PREDNISONE TAB [Concomitant]
     Indication: RHEUMATOID ARTHRITIS
     Route: 048
  11. FOSAMAX PLUS D [Concomitant]
     Indication: BONE DISORDER
  12. CLONAZEPAM [Concomitant]
     Indication: SLEEP DISORDER
     Dosage: 2-1MG
     Route: 048
  13. TACROLIMUS [Concomitant]
     Indication: DRUG USE FOR UNKNOWN INDICATION
  14. LIDODERM [Concomitant]
     Indication: BACK PAIN
     Dosage: TWO PATCHES
     Route: 062

REACTIONS (9)
  - ARTHRALGIA [None]
  - DRUG INEFFECTIVE [None]
  - FATIGUE [None]
  - JOINT SWELLING [None]
  - MYOCARDIAL INFARCTION [None]
  - OEDEMA PERIPHERAL [None]
  - PAIN [None]
  - PAIN IN EXTREMITY [None]
  - SWELLING [None]
